FAERS Safety Report 21713578 (Version 1)
Quarter: 2022Q4

REPORT INFORMATION
  Report Type: Spontaneous
  Country: CA (occurrence: CA)
  Receive Date: 20221212
  Receipt Date: 20221212
  Transmission Date: 20230113
  Serious: Yes (Other)
  Sender: FDA-Public Use
  Company Number: CA-SAMSUNG BIOEPIS-SB-2022-30981

PATIENT
  Age: 43 Year
  Sex: Female

DRUGS (1)
  1. INFLIXIMAB [Suspect]
     Active Substance: INFLIXIMAB
     Indication: Crohn^s disease
     Route: 042

REACTIONS (7)
  - Chest discomfort [Unknown]
  - Dysphagia [Unknown]
  - Flushing [Unknown]
  - Lip swelling [Unknown]
  - Movement disorder [Unknown]
  - Periorbital swelling [Unknown]
  - Off label use [Unknown]
